FAERS Safety Report 23755814 (Version 1)
Quarter: 2024Q2

REPORT INFORMATION
  Report Type: Spontaneous
  Country: US (occurrence: US)
  Receive Date: 20240418
  Receipt Date: 20240418
  Transmission Date: 20240716
  Serious: No
  Sender: FDA-Public Use
  Company Number: US-002147023-NVSC2024US082254

PATIENT
  Sex: Female

DRUGS (1)
  1. TEGRETOL [Suspect]
     Active Substance: CARBAMAZEPINE
     Indication: Seizure
     Dosage: UNK
     Route: 065

REACTIONS (2)
  - Cognitive disorder [Unknown]
  - Amnesia [Unknown]
